FAERS Safety Report 7921226-6 (Version None)
Quarter: 2011Q4

REPORT INFORMATION
  Report Type: 
  Country: None (occurrence: None)
  Receive Date: 20111117
  Receipt Date: 20111110
  Transmission Date: 20120403
  Serious: No
  Sender: FDA-Public Use
  Company Number: US-PFIZER INC-2011276632

PATIENT
  Sex: Male
  Weight: 82.1 kg

DRUGS (17)
  1. WARFARIN SODIUM [Concomitant]
     Dosage: UNK
  2. SIPULEUCEL-T [Concomitant]
     Indication: PROSTATE CANCER METASTATIC
     Dosage: 250 ML, SINGLE
     Route: 042
     Dates: start: 20111007, end: 20111007
  3. LOMOTIL [Concomitant]
     Dosage: (2.5/0.25 MG TABLET)
  4. DENOSUMAB [Concomitant]
     Dosage: UNK
     Dates: start: 20110215
  5. COZAAR [Concomitant]
     Dosage: 100 MG, UNK
  6. LASIX [Concomitant]
     Dosage: 20 MG, UNK
  7. TYLENOL-500 [Concomitant]
     Dosage: UNK
  8. ERGOCALCIFEROL [Concomitant]
     Dosage: UNK
  9. ZOSYN [Suspect]
     Indication: INFECTION
     Dosage: UNK
  10. COLECALCIFEROL [Concomitant]
     Dosage: UNK
  11. TIKOSYN [Concomitant]
     Dosage: UNK
  12. ACETYLSALICYLIC ACID [Concomitant]
     Dosage: UNK
  13. NIASPAN [Concomitant]
     Dosage: UNK
  14. LUPRON [Concomitant]
     Dosage: UNK
  15. METOPROLOL SUCCINATE [Concomitant]
     Dosage: 50 MG, UNK
  16. CALCIUM W/COLECALCIFEROL [Concomitant]
     Dosage: (500/400 MG)
  17. VYTORIN [Concomitant]
     Dosage: (10-40 MG)

REACTIONS (1)
  - DIARRHOEA [None]
